FAERS Safety Report 18245176 (Version 2)
Quarter: 2021Q1

REPORT INFORMATION
  Report Type: Spontaneous
  Country: US (occurrence: US)
  Receive Date: 20200908
  Receipt Date: 20210211
  Transmission Date: 20210419
  Serious: Yes (Other)
  Sender: FDA-Public Use
  Company Number: US-ROCHE-2669762

PATIENT
  Age: 52 Year
  Sex: Female
  Weight: 48.58 kg

DRUGS (5)
  1. XELODA [Suspect]
     Active Substance: CAPECITABINE
     Indication: BREAST CANCER FEMALE
     Route: 048
     Dates: start: 20200622
  2. HERCEPTIN [Suspect]
     Active Substance: TRASTUZUMAB
     Indication: BREAST CANCER FEMALE
     Route: 065
     Dates: start: 20200622
  3. KADCYLA [Suspect]
     Active Substance: ADO-TRASTUZUMAB EMTANSINE
     Indication: PRODUCT USED FOR UNKNOWN INDICATION
     Route: 065
  4. PERJETA [Suspect]
     Active Substance: PERTUZUMAB
     Indication: PRODUCT USED FOR UNKNOWN INDICATION
     Route: 065
     Dates: start: 20180727
  5. TUCATINIB [Suspect]
     Active Substance: TUCATINIB
     Indication: BREAST CANCER FEMALE
     Route: 065
     Dates: start: 20200622

REACTIONS (19)
  - Abdominal pain [Unknown]
  - Urinary tract infection [Unknown]
  - Dry skin [Unknown]
  - Abdominal distension [Unknown]
  - Rash [Recovered/Resolved]
  - Diarrhoea [Unknown]
  - Hepatic enzyme increased [Unknown]
  - Nausea [Unknown]
  - Fatigue [Unknown]
  - Rash [Unknown]
  - Stomatitis [Unknown]
  - Decreased appetite [Unknown]
  - Weight decreased [Unknown]
  - Vomiting [Unknown]
  - Epistaxis [Unknown]
  - Muscle spasms [Unknown]
  - Dyspepsia [Unknown]
  - Nail disorder [Unknown]
  - Pulmonary oedema [Unknown]
